FAERS Safety Report 15986575 (Version 1)
Quarter: 2019Q1

REPORT INFORMATION
  Report Type: Spontaneous
  Country: JP (occurrence: JP)
  Receive Date: 20190220
  Receipt Date: 20190220
  Transmission Date: 20190418
  Serious: Yes (Death, Hospitalization, Other)
  Sender: FDA-Public Use
  Company Number: JP-SEATTLE GENETICS-2018SGN03119

PATIENT
  Age: 83 Year
  Sex: Female

DRUGS (1)
  1. ADCETRIS [Suspect]
     Active Substance: BRENTUXIMAB VEDOTIN
     Indication: HODGKIN^S DISEASE
     Dosage: 1 DOSAGE FORM, Q3WEEKS
     Route: 041
     Dates: start: 20181023

REACTIONS (4)
  - Death [Fatal]
  - Disease progression [Unknown]
  - Pyrexia [Not Recovered/Not Resolved]
  - Hodgkin^s disease [Unknown]
